FAERS Safety Report 7761544-8 (Version None)
Quarter: 2011Q3

REPORT INFORMATION
  Report Type: 
  Country: None (occurrence: None)
  Receive Date: 20110919
  Receipt Date: 20110919
  Transmission Date: 20111222
  Serious: Yes (Other)
  Sender: FDA-Public Use
  Company Number: None

PATIENT
  Age: 19 Year
  Sex: Female

DRUGS (2)
  1. INCIVEK [Suspect]
     Dosage: 750MG Q8H PO
     Route: 048
     Dates: start: 20110911, end: 20110911
  2. PEGASYS [Suspect]
     Dosage: 180MCG QW SQ
     Route: 058
     Dates: start: 20110911, end: 20110911

REACTIONS (2)
  - URTICARIA [None]
  - FEELING ABNORMAL [None]
